FAERS Safety Report 25785983 (Version 3)
Quarter: 2025Q4

REPORT INFORMATION
  Report Type: Report from Study
  Country: PR (occurrence: PR)
  Receive Date: 20250910
  Receipt Date: 20251105
  Transmission Date: 20260117
  Serious: Yes (Other)
  Sender: MALLINCKRODT
  Company Number: PR-MALLINCKRODT-MNK202505443

PATIENT
  Sex: Male

DRUGS (3)
  1. CORTICOTROPIN [Suspect]
     Active Substance: CORTICOTROPIN
     Indication: Rheumatoid arthritis
     Dosage: UNKNOWN
  2. PLAQUENIL [Suspect]
     Active Substance: HYDROXYCHLOROQUINE SULFATE
     Indication: Product used for unknown indication
     Dosage: UNKNOWN
  3. PROTEIN [Concomitant]
     Active Substance: PROTEIN
     Dosage: UNKNOWN

REACTIONS (6)
  - Blood glucose increased [Recovering/Resolving]
  - Lymphadenopathy [Recovering/Resolving]
  - Peripheral swelling [Recovering/Resolving]
  - Insomnia [Unknown]
  - Asthenia [Unknown]
  - Fatigue [Unknown]
